FAERS Safety Report 9481511 (Version 3)
Quarter: 2013Q3

REPORT INFORMATION
  Report Type: Spontaneous
  Country: US (occurrence: US)
  Receive Date: 20130828
  Receipt Date: 20130919
  Transmission Date: 20140515
  Serious: No
  Sender: FDA-Public Use
  Company Number: US-009507513-1308USA013365

PATIENT
  Age: 77 Year
  Sex: Female
  Weight: 71.66 kg

DRUGS (8)
  1. JANUVIA [Suspect]
     Indication: DIABETES MELLITUS
     Dosage: 25 MG, QD
     Route: 048
     Dates: start: 201008, end: 20130812
  2. JANUVIA [Suspect]
     Dosage: UNK
     Route: 048
     Dates: start: 2013
  3. INSULIN [Concomitant]
  4. INDAPAMIDE [Concomitant]
  5. CRESTOR [Concomitant]
  6. ATENOLOL [Concomitant]
  7. EVISTA [Concomitant]
  8. ASPIRIN [Concomitant]

REACTIONS (2)
  - Blood glucose abnormal [Recovered/Resolved]
  - Dizziness [Recovered/Resolved]
